FAERS Safety Report 17672623 (Version 1)
Quarter: 2020Q2

REPORT INFORMATION
  Report Type: Spontaneous
  Country: FR (occurrence: FR)
  Receive Date: 20200415
  Receipt Date: 20200415
  Transmission Date: 20200713
  Serious: Yes (Life-Threatening, Hospitalization)
  Sender: FDA-Public Use
  Company Number: FR-MYLANLABS-2020M1038495

PATIENT
  Age: 46 Year
  Sex: Female
  Weight: 70 kg

DRUGS (2)
  1. OROMONE 1 MG, COMPRIM? PELLICUL? [Suspect]
     Active Substance: ESTRADIOL
     Indication: PRODUCT USED FOR UNKNOWN INDICATION
     Dosage: 20 MILLIGRAM, 28D CYCLE
     Route: 048
     Dates: start: 20010401, end: 20190615
  2. ANDROCUR [Suspect]
     Active Substance: CYPROTERONE ACETATE
     Indication: ACNE
     Dosage: 1000 MILLIGRAM, 28D CYCLE
     Route: 048
     Dates: start: 20010401, end: 20190615

REACTIONS (3)
  - Disturbance in attention [Not Recovered/Not Resolved]
  - Meningioma [Not Recovered/Not Resolved]
  - Amnestic disorder [Not Recovered/Not Resolved]

NARRATIVE: CASE EVENT DATE: 2019
